FAERS Safety Report 7359845-0 (Version None)
Quarter: 2011Q1

REPORT INFORMATION
  Report Type: 
  Country: None (occurrence: None)
  Receive Date: 20110307
  Receipt Date: 20110304
  Transmission Date: 20110831
  Serious: Yes (Other)
  Sender: FDA-Public Use
  Company Number: GRT 2011-10765

PATIENT
  Age: 34 Year
  Sex: Female

DRUGS (1)
  1. LIDODERM [Suspect]
     Indication: BACK PAIN
     Dosage: 20 PATCHES A DAY;
     Dates: start: 20080101

REACTIONS (3)
  - INCORRECT DOSE ADMINISTERED [None]
  - INTENTIONAL DRUG MISUSE [None]
  - DRUG ABUSE [None]
